FAERS Safety Report 8154158-1 (Version None)
Quarter: 2012Q1

REPORT INFORMATION
  Report Type: 
  Country: None (occurrence: None)
  Receive Date: 20120215
  Receipt Date: 20120206
  Transmission Date: 20120608
  Serious: Yes (Other)
  Sender: FDA-Public Use
  Company Number: 2012MA001722

PATIENT
  Age: 7 Year
  Sex: Female

DRUGS (1)
  1. SERTRALINE HYDROCHLORIDE [Suspect]
     Indication: ANXIETY DISORDER
     Dosage: 12.5 MG
     Dates: start: 20080101

REACTIONS (7)
  - BENIGN INTRACRANIAL HYPERTENSION [None]
  - CONDITION AGGRAVATED [None]
  - EDUCATIONAL PROBLEM [None]
  - RETINAL HAEMORRHAGE [None]
  - ACTIVITIES OF DAILY LIVING IMPAIRED [None]
  - ANXIETY DISORDER [None]
  - PAPILLOEDEMA [None]
